FAERS Safety Report 17598396 (Version 1)
Quarter: 2020Q1

REPORT INFORMATION
  Report Type: Spontaneous
  Country: US (occurrence: US)
  Receive Date: 20200328
  Receipt Date: 20200328
  Transmission Date: 20200409
  Serious: Yes (Disabling)
  Sender: FDA-Public Use
  Company Number: None

PATIENT
  Age: 48 Year
  Sex: Female
  Weight: 62.1 kg

DRUGS (1)
  1. DEXTROAMPHET SACCHARAT, AMPHET ASPARTATE, DEXTROAMPHET SULFATE AND AMPHET SULFAT [Suspect]
     Active Substance: AMPHETAMINE ASPARTATE\AMPHETAMINE SULFATE\DEXTROAMPHETAMINE SACCHARATE\DEXTROAMPHETAMINE SULFATE
     Indication: CHRONIC FATIGUE SYNDROME
     Dosage: ?          QUANTITY:1 TABLET(S);?
     Route: 048
     Dates: start: 20200220, end: 20200328

REACTIONS (10)
  - Headache [None]
  - Influenza like illness [None]
  - Gastrointestinal disorder [None]
  - Antisocial behaviour [None]
  - Disturbance in attention [None]
  - Depressed mood [None]
  - Somnolence [None]
  - Vomiting [None]
  - Product substitution issue [None]
  - Nausea [None]

NARRATIVE: CASE EVENT DATE: 20200220
